FAERS Safety Report 10159166 (Version 5)
Quarter: 2015Q3

REPORT INFORMATION
  Report Type: Spontaneous
  Country: PT (occurrence: PT)
  Receive Date: 20140508
  Receipt Date: 20150803
  Transmission Date: 20151125
  Serious: Yes (Life-Threatening, Hospitalization)
  Sender: FDA-Public Use
  Company Number: PT-ROCHE-1395544

PATIENT
  Age: 42 Year
  Sex: Male
  Weight: 83 kg

DRUGS (12)
  1. INCIVO [Suspect]
     Active Substance: TELAPREVIR
     Indication: HEPATITIS C VIRUS TEST POSITIVE
     Dosage: VAL:31/05/2015
     Route: 048
     Dates: start: 20140109, end: 20140403
  2. FENOFIBRATO [Concomitant]
     Active Substance: FENOFIBRATE
     Indication: DYSLIPIDAEMIA
     Route: 048
  3. LOCOID CRELO [Concomitant]
     Indication: PSORIASIS
     Route: 003
     Dates: start: 2011, end: 20140404
  4. ISENTRESS [Concomitant]
     Active Substance: RALTEGRAVIR POTASSIUM
     Indication: HIV INFECTION
     Dosage: 12-12 H
     Route: 048
     Dates: start: 20100818
  5. VIREAD [Concomitant]
     Active Substance: TENOFOVIR DISOPROXIL FUMARATE
     Indication: HIV INFECTION
     Route: 048
     Dates: start: 2006
  6. COPEGUS [Suspect]
     Active Substance: RIBAVIRIN
     Indication: HEPATITIS C VIRUS TEST POSITIVE
     Route: 048
     Dates: start: 20140109, end: 20140404
  7. COPEGUS [Suspect]
     Active Substance: RIBAVIRIN
     Route: 048
     Dates: end: 201412
  8. CLOBETASOL PROPIONATE. [Concomitant]
     Active Substance: CLOBETASOL PROPIONATE
     Indication: PSORIASIS
     Dosage: REPORTED AS : ETRIVEX.?SHAMPOO
     Route: 003
     Dates: start: 2011
  9. METFORMIN [Concomitant]
     Active Substance: METFORMIN HYDROCHLORIDE
     Indication: DIABETES MELLITUS
     Route: 048
  10. PEGASYS [Suspect]
     Active Substance: PEGINTERFERON ALFA-2A
     Indication: HEPATITIS C VIRUS TEST POSITIVE
     Dosage: SOLUTION FOR INJECTION IN PRE-FILLED PEN
     Route: 058
     Dates: start: 20140109, end: 20140328
  11. PEGASYS [Suspect]
     Active Substance: PEGINTERFERON ALFA-2A
     Route: 058
     Dates: end: 20141211
  12. INTELENCE [Concomitant]
     Active Substance: ETRAVIRINE
     Indication: HIV INFECTION
     Dosage: 12-12 H
     Route: 048
     Dates: start: 20130522

REACTIONS (9)
  - Pruritus generalised [Recovered/Resolved]
  - Blood glucose increased [Recovered/Resolved]
  - Weight decreased [Unknown]
  - Exfoliative rash [Recovered/Resolved]
  - Psoriasis [Recovering/Resolving]
  - Dermatosis [Not Recovered/Not Resolved]
  - Thirst [Recovered/Resolved]
  - Erythrodermic psoriasis [Recovering/Resolving]
  - Arthralgia [Recovered/Resolved]

NARRATIVE: CASE EVENT DATE: 20140123
